FAERS Safety Report 7292830-6 (Version None)
Quarter: 2011Q1

REPORT INFORMATION
  Report Type: 
  Country: None (occurrence: None)
  Receive Date: 20110209
  Receipt Date: 20110209
  Transmission Date: 20110831
  Serious: Yes (Hospitalization, Other)
  Sender: FDA-Public Use
  Company Number: None

PATIENT
  Age: 24 Year
  Sex: Female
  Weight: 68.0396 kg

DRUGS (1)
  1. YAZ, OCELLA [Suspect]
     Indication: CONTRACEPTION
     Dosage: MONTH SUPPLY OD BIRTH CONTROL DAILY
     Dates: start: 20050101, end: 20090101

REACTIONS (1)
  - CHOLELITHIASIS [None]
